FAERS Safety Report 9376244 (Version 1)
Quarter: 2013Q3

REPORT INFORMATION
  Report Type: Spontaneous
  Country: US (occurrence: US)
  Receive Date: 20130701
  Receipt Date: 20130701
  Transmission Date: 20140515
  Serious: Yes (Other)
  Sender: FDA-Public Use
  Company Number: US-009507513-1306USA013796

PATIENT
  Age: 30 Year
  Sex: Female

DRUGS (1)
  1. IMPLANON [Suspect]
     Indication: CONTRACEPTION
     Dosage: UNK
     Dates: end: 201106

REACTIONS (5)
  - Surgery [Recovered/Resolved]
  - Device difficult to use [Recovered/Resolved]
  - Scar [Not Recovered/Not Resolved]
  - Application site pain [Not Recovered/Not Resolved]
  - Medical device complication [Recovered/Resolved]
